FAERS Safety Report 13294529 (Version 2)
Quarter: 2017Q3

REPORT INFORMATION
  Report Type: Spontaneous
  Country: US (occurrence: US)
  Receive Date: 20170303
  Receipt Date: 20170922
  Transmission Date: 20171127
  Serious: Yes (Hospitalization)
  Sender: FDA-Public Use
  Company Number: US-JNJFOC-20161209739

PATIENT
  Age: 82 Year
  Sex: Male

DRUGS (4)
  1. XARELTO [Suspect]
     Active Substance: RIVAROXABAN
     Indication: ATRIAL FIBRILLATION
     Dosage: VARYING DOSES OF 10 MG AND 20 MG
     Route: 048
     Dates: start: 20140701, end: 20150111
  2. XARELTO [Suspect]
     Active Substance: RIVAROXABAN
     Indication: DEEP VEIN THROMBOSIS
     Dosage: VARYING DOSES OF 10 MG AND 20 MG
     Route: 048
     Dates: start: 20140701, end: 20150111
  3. ASPIRIN. [Suspect]
     Active Substance: ASPIRIN
     Indication: CARDIAC DISORDER
     Route: 048
  4. XARELTO [Suspect]
     Active Substance: RIVAROXABAN
     Indication: CEREBROVASCULAR ACCIDENT PROPHYLAXIS
     Dosage: VARYING DOSES OF 10 MG AND 20 MG
     Route: 048
     Dates: start: 20140701, end: 20150111

REACTIONS (2)
  - Haematemesis [Recovering/Resolving]
  - Haemorrhagic arteriovenous malformation [Recovering/Resolving]

NARRATIVE: CASE EVENT DATE: 20141221
